FAERS Safety Report 4372838-0 (Version None)
Quarter: 2004Q2

REPORT INFORMATION
  Report Type: 
  Country: None (occurrence: None)
  Receive Date: 20040526
  Receipt Date: 20040512
  Transmission Date: 20050107
  Serious: Yes (Death, Hospitalization)
  Sender: FDA-Public Use
  Company Number: S03-GER-05110-01

PATIENT
  Age: 82 Year
  Sex: Male

DRUGS (8)
  1. MEMANTINE [Suspect]
     Indication: DEMENTIA ALZHEIMER'S TYPE
     Dosage: 10 MG BID PO
     Route: 048
     Dates: start: 20030801, end: 20031212
  2. MEMANTINE [Suspect]
     Indication: DEMENTIA ALZHEIMER'S TYPE
     Dosage: 5 MG QD PO
     Route: 048
     Dates: start: 20030601, end: 20030801
  3. NAMENDA [Suspect]
     Indication: DEMENTIA ALZHEIMER'S TYPE
     Dosage: 5 MG BID PO
     Route: 048
     Dates: start: 20040116, end: 20040301
  4. GLUCOPHAGE [Concomitant]
  5. ZESTRIL [Concomitant]
  6. EXELON [Concomitant]
  7. FLOMAX [Concomitant]
  8. TRENTAL [Concomitant]

REACTIONS (26)
  - ABASIA [None]
  - AGITATION [None]
  - ALANINE AMINOTRANSFERASE INCREASED [None]
  - ASPARTATE AMINOTRANSFERASE INCREASED [None]
  - ASTHENIA [None]
  - BALANCE DISORDER [None]
  - BLOOD PRESSURE FLUCTUATION [None]
  - CEREBRAL HAEMORRHAGE [None]
  - COGNITIVE DETERIORATION [None]
  - COMA [None]
  - CONDITION AGGRAVATED [None]
  - CONFUSIONAL STATE [None]
  - DEMENTIA ALZHEIMER'S TYPE [None]
  - DIABETES MELLITUS [None]
  - DISORIENTATION [None]
  - DISTURBANCE IN ATTENTION [None]
  - EMBOLIC STROKE [None]
  - HAEMATOCRIT DECREASED [None]
  - HAEMOGLOBIN DECREASED [None]
  - HEMIPARESIS [None]
  - HYPERTENSION [None]
  - MONOPLEGIA [None]
  - MYOCARDIAL INFARCTION [None]
  - PANCREATITIS [None]
  - REFLEXES ABNORMAL [None]
  - SEPSIS [None]
